FAERS Safety Report 12960144 (Version 2)
Quarter: 2021Q3

REPORT INFORMATION
  Report Type: Spontaneous
  Country: US (occurrence: US)
  Receive Date: 20161121
  Receipt Date: 20210814
  Transmission Date: 20211014
  Serious: Yes (Death)
  Sender: FDA-Public Use
  Company Number: US-TEVA-713614USA

PATIENT
  Age: 52 Year
  Sex: Female

DRUGS (1)
  1. IMATINIB MESYLATE. [Suspect]
     Active Substance: IMATINIB MESYLATE
     Indication: SYSTEMIC SCLERODERMA
     Dosage: 400 MILLIGRAM DAILY;
     Route: 065

REACTIONS (4)
  - Acute myocardial infarction [Fatal]
  - Weight increased [Unknown]
  - Oedema [Fatal]
  - Capillary leak syndrome [Fatal]
